FAERS Safety Report 14540589 (Version 1)
Quarter: 2018Q1

REPORT INFORMATION
  Report Type: Spontaneous
  Country: DE (occurrence: DE)
  Receive Date: 20180216
  Receipt Date: 20180216
  Transmission Date: 20180509
  Serious: Yes (Other)
  Sender: FDA-Public Use
  Company Number: DE-OTSUKA-DJ20071855

PATIENT

DRUGS (3)
  1. ABILIFY [Suspect]
     Active Substance: ARIPIPRAZOLE
     Route: 065
     Dates: start: 2007
  2. ABILIFY [Suspect]
     Active Substance: ARIPIPRAZOLE
     Route: 065
     Dates: start: 200612
  3. ABILIFY [Suspect]
     Active Substance: ARIPIPRAZOLE
     Route: 065
     Dates: start: 200609

REACTIONS (2)
  - Hallucination, auditory [Recovered/Resolved]
  - Psychotic disorder [Recovered/Resolved]

NARRATIVE: CASE EVENT DATE: 20070424
